FAERS Safety Report 6057626-1 (Version None)
Quarter: 2009Q1

REPORT INFORMATION
  Report Type: 
  Country: None (occurrence: None)
  Receive Date: 20090127
  Receipt Date: 20090127
  Transmission Date: 20090719
  Serious: Yes (Hospitalization)
  Sender: FDA-Public Use
  Company Number: None

PATIENT
  Age: 68 Year
  Sex: Male
  Weight: 115 kg

DRUGS (6)
  1. WARFARIN SODIUM [Suspect]
     Indication: ATRIAL FIBRILLATION
     Dosage: 7.5MG DAILY PO
     Route: 048
  2. ASPIRIN [Suspect]
     Indication: HEADACHE
     Dosage: 325MG OTO PO
     Route: 048
  3. DIGOXIN [Concomitant]
  4. SEREVENT [Concomitant]
  5. SPIRIVA [Concomitant]
  6. ALBUTEROL [Concomitant]

REACTIONS (5)
  - FACIAL PALSY [None]
  - FALL [None]
  - HAEMORRHAGE INTRACRANIAL [None]
  - LOSS OF CONSCIOUSNESS [None]
  - MONOPLEGIA [None]
